FAERS Safety Report 9259592 (Version 3)
Quarter: 2014Q1

REPORT INFORMATION
  Report Type: Spontaneous
  Country: US (occurrence: US)
  Receive Date: 20130429
  Receipt Date: 20140305
  Transmission Date: 20141002
  Serious: Yes (Death)
  Sender: FDA-Public Use
  Company Number: US-ASTRAZENECA-2013SE27464

PATIENT
  Age: 84 Year
  Sex: Female
  Weight: 52.2 kg

DRUGS (17)
  1. NEXIUM [Suspect]
     Indication: GASTROOESOPHAGEAL REFLUX DISEASE
     Route: 048
     Dates: start: 2009, end: 2011
  2. NEXIUM [Suspect]
     Indication: GASTROOESOPHAGEAL REFLUX DISEASE
     Route: 048
     Dates: start: 20110405
  3. SIMVASTATIN [Concomitant]
     Indication: BLOOD CHOLESTEROL ABNORMAL
  4. PROMETHAZINE [Concomitant]
     Indication: NAUSEA
  5. SPIRONOLACTONE [Concomitant]
     Indication: CARDIAC FAILURE
  6. METOCLOPRAMIDE [Concomitant]
     Indication: GASTROOESOPHAGEAL REFLUX DISEASE
  7. FUROSEMIDE [Concomitant]
     Indication: CARDIAC FAILURE
  8. RAMIPRIL [Concomitant]
     Indication: CARDIAC FAILURE
  9. CARVEDILOL [Concomitant]
     Indication: CARDIAC FAILURE
  10. CALCIUM [Concomitant]
     Indication: SUPPLEMENTATION THERAPY
  11. WARFARIN [Concomitant]
     Indication: THROMBOSIS
  12. HYDROCODONE [Concomitant]
     Indication: PAIN
  13. POTASSIUM [Concomitant]
     Indication: SUPPLEMENTATION THERAPY
  14. OMEPRAZOLE [Concomitant]
     Dates: start: 20101201
  15. AGGRENOX [Concomitant]
     Dates: start: 20101201
  16. OXYCONTIN [Concomitant]
     Dates: start: 20110504
  17. CEPHALEXIN [Concomitant]
     Dates: start: 20110504

REACTIONS (7)
  - Oesophageal carcinoma [Fatal]
  - Osteoporosis [Unknown]
  - Bone disorder [Unknown]
  - Multiple fractures [Unknown]
  - Upper limb fracture [Unknown]
  - Arthritis [Unknown]
  - Osteopenia [Unknown]
